FAERS Safety Report 4564546-8 (Version None)
Quarter: 2005Q1

REPORT INFORMATION
  Report Type: 
  Country: None (occurrence: None)
  Receive Date: 20050126
  Receipt Date: 20031015
  Transmission Date: 20050727
  Serious: Yes (Other)
  Sender: FDA-Public Use
  Company Number: 2005-CN-00319CN

PATIENT

DRUGS (3)
  1. ATROVENT [Suspect]
     Indication: CHRONIC OBSTRUCTIVE PULMONARY DISEASE
     Route: 055
  2. OXEZE (FORMOTEROL FUMARATE) [Concomitant]
  3. FLU-SHOT [Concomitant]

REACTIONS (1)
  - HIP ARTHROPLASTY [None]
